FAERS Safety Report 9893652 (Version 2)
Quarter: 2014Q1

REPORT INFORMATION
  Report Type: Spontaneous
  Country: CA (occurrence: CA)
  Receive Date: 20140213
  Receipt Date: 20140213
  Transmission Date: 20141002
  Serious: Yes (Other)
  Sender: FDA-Public Use
  Company Number: CA-PFIZER INC-2013188719

PATIENT
  Age: 29 Year
  Sex: Female

DRUGS (2)
  1. RELPAX [Suspect]
     Indication: MIGRAINE
     Dosage: NO MORE THAN 40MG/DAY, NO MORE THAN 3 PER WEEK
     Dates: start: 201112
  2. RELPAX [Suspect]
     Dosage: EVERY DAY AT BEDTIME
     Dates: end: 20140129

REACTIONS (16)
  - Drug dependence [Unknown]
  - Drug withdrawal syndrome [Not Recovered/Not Resolved]
  - Migraine [Not Recovered/Not Resolved]
  - Nausea [Unknown]
  - Fear of death [Not Recovered/Not Resolved]
  - Tremor [Not Recovered/Not Resolved]
  - Chills [Not Recovered/Not Resolved]
  - Peripheral coldness [Not Recovered/Not Resolved]
  - Palpitations [Not Recovered/Not Resolved]
  - Anxiety [Not Recovered/Not Resolved]
  - Chest discomfort [Not Recovered/Not Resolved]
  - Dry mouth [Not Recovered/Not Resolved]
  - Hypoaesthesia [Not Recovered/Not Resolved]
  - Pain in extremity [Not Recovered/Not Resolved]
  - Malaise [Not Recovered/Not Resolved]
  - Drug ineffective [Unknown]
